FAERS Safety Report 5407332-9 (Version None)
Quarter: 2007Q3

REPORT INFORMATION
  Report Type: 
  Country: None (occurrence: None)
  Receive Date: 20070807
  Receipt Date: 20070727
  Transmission Date: 20080115
  Serious: Yes (Hospitalization)
  Sender: FDA-Public Use
  Company Number: FR-ROCHE-509071

PATIENT
  Age: 30 Year
  Sex: Male

DRUGS (6)
  1. PEGASYS [Suspect]
     Dosage: FORM: INJECTABLE SOLUTION.
     Route: 065
     Dates: start: 20061201, end: 20070201
  2. PEGASYS [Suspect]
     Route: 065
  3. COPEGUS [Suspect]
     Route: 065
     Dates: start: 20061201, end: 20070201
  4. COPEGUS [Suspect]
     Route: 065
  5. SERESTA [Suspect]
     Route: 048
  6. SUBUTEX [Suspect]
     Route: 065

REACTIONS (1)
  - OEDEMA [None]
